FAERS Safety Report 5721901-8 (Version None)
Quarter: 2008Q2

REPORT INFORMATION
  Report Type: 
  Country: None (occurrence: None)
  Receive Date: 20080429
  Receipt Date: 20080418
  Transmission Date: 20081010
  Serious: Yes (Other)
  Sender: FDA-Public Use
  Company Number: US-PFIZER INC-2008003017

PATIENT
  Sex: Female

DRUGS (2)
  1. XALATAN [Suspect]
  2. XAL-EASE [Suspect]

REACTIONS (1)
  - HERPES ZOSTER [None]
